FAERS Safety Report 4628416-9 (Version None)
Quarter: 2005Q2

REPORT INFORMATION
  Report Type: 
  Country: None (occurrence: None)
  Receive Date: 20050401
  Receipt Date: 20050321
  Transmission Date: 20051028
  Serious: Yes (Other)
  Sender: FDA-Public Use
  Company Number: 2005047645

PATIENT
  Sex: Male

DRUGS (2)
  1. CLEOCIN PHOSPHATE [Suspect]
     Indication: ILL-DEFINED DISORDER
     Dosage: 900 MG (300 MG, 1 IN 8 HR), INTRAVENOUS
     Route: 042
     Dates: start: 20050314
  2. TOTAL PARENTERAL NUTRITION (TOTAL PARENTERAL NUTRITION) [Concomitant]

REACTIONS (1)
  - BLOOD PHOSPHORUS INCREASED [None]
